FAERS Safety Report 7975225-9 (Version None)
Quarter: 2011Q4

REPORT INFORMATION
  Report Type: 
  Country: None (occurrence: None)
  Receive Date: 20111213
  Receipt Date: 20110922
  Transmission Date: 20120403
  Serious: No
  Sender: FDA-Public Use
  Company Number: US-AMGEN-USASP2011049003

PATIENT
  Sex: Female

DRUGS (2)
  1. ARAVA [Concomitant]
     Dosage: 1 MG, QD
     Dates: start: 20110906
  2. ENBREL [Suspect]
     Indication: RHEUMATOID ARTHRITIS
     Dosage: 50 MG, QWK
     Dates: start: 20020125

REACTIONS (5)
  - ARTHRALGIA [None]
  - NODULE [None]
  - FINGER DEFORMITY [None]
  - PAIN IN EXTREMITY [None]
  - MUSCULOSKELETAL PAIN [None]
